FAERS Safety Report 5340707-5 (Version None)
Quarter: 2007Q2

REPORT INFORMATION
  Report Type: 
  Country: None (occurrence: None)
  Receive Date: 20070405
  Receipt Date: 20061215
  Transmission Date: 20071010
  Serious: No
  Sender: FDA-Public Use
  Company Number: US200612002947

PATIENT
  Age: 57 Year
  Sex: Female

DRUGS (4)
  1. CYMBALTA [Suspect]
     Indication: PAIN
     Dosage: 30 MG, ORAL
     Route: 048
     Dates: start: 20061201
  2. ZOLOFT [Concomitant]
  3. FLECAINIDE ACETATE [Concomitant]
  4. COUMADIN [Concomitant]

REACTIONS (3)
  - FLUSHING [None]
  - HYPOMANIA [None]
  - LOGORRHOEA [None]
